FAERS Safety Report 8768423 (Version 1)
Quarter: 2012Q4

REPORT INFORMATION
  Report Type: 
  Country: US (occurrence: US)
  Receive Date: 20120904
  Receipt Date: 20120904
  Transmission Date: 20130627
  Serious: No
  Sender: FDA-Public Use
  Company Number: US-AMGEN-USASP2012051680

PATIENT
  Age: 75 Year
  Sex: Female
  Weight: 97.51 kg

DRUGS (5)
  1. ENBREL [Suspect]
     Indication: RHEUMATOID ARTHRITIS
     Dosage: 50 mg, qwk
     Route: 058
     Dates: start: 20111229
  2. LEFLUNOMIDE [Concomitant]
     Dosage: UNK
  3. HYDROXYCHLOROQUINE [Concomitant]
     Dosage: UNK
  4. PRED                               /00016201/ [Concomitant]
     Dosage: 7.5 mg, qd
  5. MTX                                /00113801/ [Concomitant]

REACTIONS (5)
  - Drug effect incomplete [Not Recovered/Not Resolved]
  - Synovitis [Unknown]
  - Renal failure chronic [Unknown]
  - Rheumatoid arthritis [Recovered/Resolved]
  - Angioedema [Unknown]
